FAERS Safety Report 14979748 (Version 4)
Quarter: 2018Q3

REPORT INFORMATION
  Report Type: Spontaneous
  Country: IT (occurrence: IT)
  Receive Date: 20180606
  Receipt Date: 20180724
  Transmission Date: 20181010
  Serious: Yes (Other)
  Sender: FDA-Public Use
  Company Number: PHHY2018IT015669

PATIENT
  Age: 38 Year
  Sex: Female
  Weight: 40 kg

DRUGS (2)
  1. SEROPRAM [Concomitant]
     Indication: DEPRESSION
     Dosage: UNK
     Route: 065
  2. QUETIAPINE. [Suspect]
     Active Substance: QUETIAPINE
     Indication: PSYCHOTIC DISORDER
     Dosage: 75 MG, QD
     Route: 048
     Dates: start: 20170501, end: 20170801

REACTIONS (2)
  - Drug ineffective [Recovering/Resolving]
  - Bipolar I disorder [Recovering/Resolving]

NARRATIVE: CASE EVENT DATE: 20170715
